FAERS Safety Report 13430398 (Version 5)
Quarter: 2017Q2

REPORT INFORMATION
  Report Type: Spontaneous
  Country: US (occurrence: US)
  Receive Date: 20170412
  Receipt Date: 20170529
  Transmission Date: 20170830
  Serious: No
  Sender: FDA-Public Use
  Company Number: US-PFIZER INC-2017114002

PATIENT
  Age: 55 Year
  Sex: Male
  Weight: 64.4 kg

DRUGS (2)
  1. SUTENT [Suspect]
     Active Substance: SUNITINIB MALATE
     Indication: METASTATIC RENAL CELL CARCINOMA
     Dosage: 50 MG, CYCLIC (2WEEKS ON / 1WEEK OFF)
     Dates: start: 20170322, end: 20170323
  2. OXYCODONE [Concomitant]
     Active Substance: OXYCODONE
     Dosage: UNK

REACTIONS (10)
  - Neoplasm progression [Unknown]
  - Asthenia [Not Recovered/Not Resolved]
  - Tongue discomfort [Unknown]
  - Oral pain [Unknown]
  - Malaise [Unknown]
  - Dysgeusia [Not Recovered/Not Resolved]
  - Weight decreased [Unknown]
  - Fatigue [Unknown]
  - Oral discomfort [Unknown]
  - Candida infection [Recovered/Resolved]
